FAERS Safety Report 12248969 (Version 2)
Quarter: 2016Q2

REPORT INFORMATION
  Report Type: Report from Study
  Country: US (occurrence: US)
  Receive Date: 20160408
  Receipt Date: 20160510
  Transmission Date: 20160815
  Serious: Yes (Other)
  Sender: FDA-Public Use
  Company Number: US-ABBVIE-16K-163-1596210-00

PATIENT
  Age: 33 Year
  Sex: Female

DRUGS (2)
  1. HUMIRA [Suspect]
     Active Substance: ADALIMUMAB
     Indication: CROHN^S DISEASE
     Route: 058
     Dates: start: 20151003, end: 2016
  2. HUMIRA [Suspect]
     Active Substance: ADALIMUMAB
     Indication: CROHN^S DISEASE
     Route: 058
     Dates: start: 201604

REACTIONS (11)
  - Flatulence [Unknown]
  - Gastrointestinal sounds abnormal [Unknown]
  - Haematochezia [Unknown]
  - Post procedural inflammation [Unknown]
  - Intestinal obstruction [Recovered/Resolved]
  - Haematemesis [Unknown]
  - Blood iron decreased [Recovering/Resolving]
  - Drug ineffective [Not Recovered/Not Resolved]
  - Postoperative adhesion [Unknown]
  - Procedural intestinal perforation [Unknown]
  - Malaise [Unknown]

NARRATIVE: CASE EVENT DATE: 20151003
